FAERS Safety Report 19847095 (Version 1)
Quarter: 2021Q3

REPORT INFORMATION
  Report Type: Report from Study
  Country: ES (occurrence: ES)
  Receive Date: 20210917
  Receipt Date: 20210917
  Transmission Date: 20211014
  Serious: Yes (Hospitalization, Other)
  Sender: FDA-Public Use
  Company Number: ES-VALIDUS PHARMACEUTICALS LLC-ES-VDP-2021-001652

PATIENT
  Age: 83 Year
  Sex: Male
  Weight: 68 kg

DRUGS (12)
  1. INSULIN GLARGINE [Suspect]
     Active Substance: INSULIN GLARGINE
     Dosage: 32 IU
     Route: 058
     Dates: start: 20210805
  2. INSULIN GLARGINE [Suspect]
     Active Substance: INSULIN GLARGINE
     Dosage: DOSE REDUCED TO 26 IU
     Route: 058
  3. SOMATULINE AUTOGEL [Suspect]
     Active Substance: LANREOTIDE ACETATE
     Indication: BENIGN PANCREATIC NEOPLASM
     Dosage: UNK, QMO
     Route: 065
  4. SOMATULINE AUTOGEL [Suspect]
     Active Substance: LANREOTIDE ACETATE
     Indication: HEPATIC NEOPLASM
  5. FUROSEMIDE. [Suspect]
     Active Substance: FUROSEMIDE
     Indication: PRODUCT USED FOR UNKNOWN INDICATION
     Route: 048
  6. IXIA [Suspect]
     Active Substance: OLMESARTAN MEDOXOMIL
     Indication: PRODUCT USED FOR UNKNOWN INDICATION
     Route: 065
  7. NOVONORM [Concomitant]
     Active Substance: REPAGLINIDE
     Indication: PRODUCT USED FOR UNKNOWN INDICATION
     Route: 065
  8. INSULIN GLARGINE [Suspect]
     Active Substance: INSULIN GLARGINE
     Indication: TYPE 2 DIABETES MELLITUS
     Dosage: UNK
     Route: 058
  9. INSULIN GLARGINE [Suspect]
     Active Substance: INSULIN GLARGINE
     Dosage: 30 IU
     Route: 058
     Dates: start: 20210804, end: 20210804
  10. INSULIN GLARGINE [Suspect]
     Active Substance: INSULIN GLARGINE
     Dosage: 28 IU
     Route: 058
     Dates: start: 20210803, end: 20210803
  11. HUMALOG [Concomitant]
     Active Substance: INSULIN LISPRO
     Indication: PRODUCT USED FOR UNKNOWN INDICATION
     Route: 065
  12. LOSARTAN. [Concomitant]
     Active Substance: LOSARTAN
     Indication: PRODUCT USED FOR UNKNOWN INDICATION
     Dosage: 50 MG
     Route: 065

REACTIONS (23)
  - Blood glucose abnormal [Unknown]
  - Fluid retention [Unknown]
  - Hepatic neoplasm [Unknown]
  - Visual impairment [Unknown]
  - Pancreatic cyst [Not Recovered/Not Resolved]
  - Blood pressure abnormal [Unknown]
  - Abdominal distension [Not Recovered/Not Resolved]
  - Blood glucose fluctuation [Unknown]
  - Intentional product misuse [Unknown]
  - Blood sodium decreased [Unknown]
  - Cyanosis [Recovered/Resolved]
  - Weight decreased [Unknown]
  - Urine analysis abnormal [Unknown]
  - Renal disorder [Not Recovered/Not Resolved]
  - Loss of consciousness [Recovered/Resolved]
  - Diabetes mellitus inadequate control [Not Recovered/Not Resolved]
  - Hepatic cyst [Not Recovered/Not Resolved]
  - Blood disorder [Not Recovered/Not Resolved]
  - Weight increased [Unknown]
  - Fatigue [Unknown]
  - Hypoglycaemia [Recovered/Resolved]
  - Benign pancreatic neoplasm [Unknown]
  - Nocturia [Unknown]

NARRATIVE: CASE EVENT DATE: 20200130
